FAERS Safety Report 6707772-1 (Version None)
Quarter: 2010Q2

REPORT INFORMATION
  Report Type: 
  Country: None (occurrence: None)
  Receive Date: 20100503
  Receipt Date: 20090717
  Transmission Date: 20101027
  Serious: No
  Sender: FDA-Public Use
  Company Number: US-ASTRAZENECA-2009SE11871

PATIENT
  Age: 61 Year
  Sex: Female
  Weight: 114.3 kg

DRUGS (3)
  1. NEXIUM [Suspect]
     Indication: GASTROOESOPHAGEAL REFLUX DISEASE
     Route: 048
     Dates: start: 20090714
  2. THYROID TAB [Concomitant]
  3. MULTI-VITAMIN [Concomitant]

REACTIONS (2)
  - DEHYDRATION [None]
  - HEADACHE [None]
